FAERS Safety Report 16804975 (Version 1)
Quarter: 2019Q3

REPORT INFORMATION
  Report Type: Spontaneous
  Country: US (occurrence: US)
  Receive Date: 20190723
  Receipt Date: 20190723
  Transmission Date: 20191005
  Serious: Yes (Hospitalization)
  Sender: FDA-Public Use
  Company Number: None

PATIENT
  Age: 63 Year
  Sex: Male
  Weight: 120.9 kg

DRUGS (1)
  1. OLANZAPINE. [Suspect]
     Active Substance: OLANZAPINE
     Dates: end: 20190608

REACTIONS (4)
  - Syncope [None]
  - Hypotension [None]
  - Acute kidney injury [None]
  - Hypokalaemia [None]

NARRATIVE: CASE EVENT DATE: 20190715
